FAERS Safety Report 14849713 (Version 10)
Quarter: 2019Q1

REPORT INFORMATION
  Report Type: Report from Study
  Country: CA (occurrence: CA)
  Receive Date: 20180504
  Receipt Date: 20190124
  Transmission Date: 20190417
  Serious: Yes (Other)
  Sender: FDA-Public Use
  Company Number: CA-PFIZER INC-2018185611

PATIENT
  Age: 62 Year
  Sex: Female
  Weight: 97 kg

DRUGS (12)
  1. SIGNIFOR [Suspect]
     Active Substance: PASIREOTIDE
     Dosage: 0.6 MG, BID
     Route: 030
     Dates: start: 201803, end: 20180416
  2. CABERGOLINE. [Concomitant]
     Active Substance: CABERGOLINE
     Dosage: UNK
     Route: 065
  3. PANTOPRAZOLE [Suspect]
     Active Substance: PANTOPRAZOLE
     Dosage: UNK UNK, BID
     Route: 065
     Dates: start: 20180416
  4. VITAMIN D [Concomitant]
     Active Substance: CHOLECALCIFEROL
     Dosage: UNK
  5. CORTEF [Suspect]
     Active Substance: HYDROCORTISONE
     Dosage: UNK
     Route: 065
  6. SIGNIFOR [Suspect]
     Active Substance: PASIREOTIDE
     Indication: PITUITARY-DEPENDENT CUSHING^S SYNDROME
     Dosage: 0.3 MG, BID
     Route: 030
     Dates: start: 20180308
  7. SIGNIFOR [Suspect]
     Active Substance: PASIREOTIDE
     Dosage: 0.9 MG, BID
     Route: 058
     Dates: start: 20180801
  8. IRBESARTAN HCT [Concomitant]
     Active Substance: HYDROCHLOROTHIAZIDE\IRBESARTAN
     Dosage: UNK
  9. JANUMET [Concomitant]
     Active Substance: METFORMIN HYDROCHLORIDE\SITAGLIPTIN PHOSPHATE
     Dosage: UNK
  10. CARBAMIDE [Concomitant]
     Active Substance: UREA
     Dosage: UNK
  11. CALCIUM [Concomitant]
     Active Substance: CALCIUM
     Dosage: UNK
  12. IRON [Concomitant]
     Active Substance: IRON
     Dosage: UNK

REACTIONS (33)
  - Abnormal faeces [Recovered/Resolved]
  - Frequent bowel movements [Unknown]
  - Furuncle [Unknown]
  - Abdominal pain upper [Unknown]
  - Abdominal pain lower [Recovered/Resolved]
  - Abdominal pain lower [Recovered/Resolved]
  - Blood glucose abnormal [Recovering/Resolving]
  - Injection site pain [Unknown]
  - Blood urine present [Unknown]
  - Uterine mass [Unknown]
  - Vomiting [Recovered/Resolved]
  - Fatigue [Unknown]
  - Abdominal discomfort [Unknown]
  - Vaginal haemorrhage [Unknown]
  - Menstrual disorder [Recovering/Resolving]
  - Dysuria [Not Recovered/Not Resolved]
  - Libido increased [Unknown]
  - Somnolence [Unknown]
  - Nausea [Recovered/Resolved]
  - Asthenia [Unknown]
  - Balance disorder [Unknown]
  - Hydrothorax [Recovered/Resolved]
  - Chest pain [Recovered/Resolved]
  - Dyspnoea [Recovering/Resolving]
  - Peripheral swelling [Unknown]
  - Pain [Unknown]
  - Headache [Unknown]
  - Hyperglycaemia [Unknown]
  - Dyspnoea exertional [Unknown]
  - Dysphagia [Unknown]
  - Gait inability [Unknown]
  - Weight increased [Unknown]
  - Dizziness [Unknown]

NARRATIVE: CASE EVENT DATE: 201803
